FAERS Safety Report 8569636-0 (Version None)
Quarter: 2012Q3

REPORT INFORMATION
  Report Type: 
  Country: None (occurrence: None)
  Receive Date: 20120803
  Receipt Date: 20120619
  Transmission Date: 20120928
  Serious: No
  Sender: FDA-Public Use
  Company Number: US-ABBOTT-12P-163-0947754-00

PATIENT
  Sex: Male

DRUGS (2)
  1. NIASPAN [Suspect]
     Route: 048
     Dates: start: 20120611
  2. NIASPAN [Suspect]
     Indication: PRODUCT USED FOR UNKNOWN INDICATION
     Dosage: AT BEDTIME FOR ONE WEEK
     Route: 048
     Dates: start: 20120604, end: 20120610

REACTIONS (3)
  - PARAESTHESIA [None]
  - PRURITUS [None]
  - FLUSHING [None]
